FAERS Safety Report 17646553 (Version 1)
Quarter: 2020Q2

REPORT INFORMATION
  Report Type: Spontaneous
  Country: US (occurrence: US)
  Receive Date: 20200408
  Receipt Date: 20200408
  Transmission Date: 20200713
  Serious: No
  Sender: FDA-Public Use
  Company Number: US-VERTEX PHARMACEUTICALS-2020-001789

PATIENT
  Age: 58 Year
  Sex: Female

DRUGS (1)
  1. TRIKAFTA [Suspect]
     Active Substance: ELEXACAFTOR\IVACAFTOR\TEZACAFTOR
     Indication: CYSTIC FIBROSIS
     Dosage: (2 TABS IN AM ,1 TAB IN PM) BID
     Route: 048
     Dates: start: 20191211

REACTIONS (8)
  - Cough [Recovered/Resolved]
  - Influenza like illness [Recovered/Resolved]
  - Rash [Recovered/Resolved]
  - Ocular discomfort [Recovering/Resolving]
  - Blood pressure increased [Not Recovered/Not Resolved]
  - Weight increased [Unknown]
  - Oedema [Not Recovered/Not Resolved]
  - Pain [Recovered/Resolved]

NARRATIVE: CASE EVENT DATE: 20191211
